FAERS Safety Report 16855658 (Version 2)
Quarter: 2022Q3

REPORT INFORMATION
  Report Type: Report from Study
  Country: FR (occurrence: FR)
  Receive Date: 20190926
  Receipt Date: 20220701
  Transmission Date: 20221026
  Serious: Yes (Other)
  Sender: FDA-Public Use
  Company Number: FR-GILEAD-2017-0306800

PATIENT
  Sex: Male

DRUGS (2)
  1. EMTRICITABINE\TENOFOVIR DISOPROXIL FUMARATE [Suspect]
     Active Substance: EMTRICITABINE\TENOFOVIR DISOPROXIL FUMARATE
     Indication: Product used for unknown indication
     Dosage: UNK
     Route: 065
     Dates: start: 2016
  2. TIVICAY [Concomitant]
     Active Substance: DOLUTEGRAVIR SODIUM
     Dosage: UNK
     Route: 065

REACTIONS (17)
  - Renal failure [Unknown]
  - Illness [Unknown]
  - Swelling [Recovered/Resolved]
  - Swelling face [Unknown]
  - Joint swelling [Unknown]
  - Muscle spasms [Unknown]
  - Limb discomfort [Unknown]
  - Pain in extremity [Unknown]
  - Pelvic discomfort [Unknown]
  - Weight decreased [Unknown]
  - Decreased activity [Unknown]
  - Movement disorder [Unknown]
  - Fat tissue increased [Recovered/Resolved]
  - Bone demineralisation [Unknown]
  - Musculoskeletal discomfort [Unknown]
  - Glomerular filtration rate decreased [Unknown]
  - Insomnia [Recovering/Resolving]
